FAERS Safety Report 16564040 (Version 1)
Quarter: 2019Q3

REPORT INFORMATION
  Report Type: Spontaneous
  Country: US (occurrence: US)
  Receive Date: 20190530
  Receipt Date: 20190530
  Transmission Date: 20191004
  Serious: No
  Sender: FDA-Public Use
  Company Number: None

PATIENT
  Age: 61 Year
  Sex: Female

DRUGS (1)
  1. IBRANCE [Suspect]
     Active Substance: PALBOCICLIB
     Route: 048
     Dates: start: 201707

REACTIONS (3)
  - Transcription medication error [None]
  - Wrong schedule [None]
  - Intercepted product dispensing error [None]

NARRATIVE: CASE EVENT DATE: 20181129
